FAERS Safety Report 14206436 (Version 1)
Quarter: 2017Q4

REPORT INFORMATION
  Report Type: Spontaneous
  Country: GB (occurrence: GB)
  Receive Date: 20171120
  Receipt Date: 20171120
  Transmission Date: 20180321
  Serious: Yes (Hospitalization)
  Sender: FDA-Public Use
  Company Number: GB-BIOMARINAP-GB-2017-116120

PATIENT
  Age: 5 Year
  Sex: Female
  Weight: 16.8 kg

DRUGS (3)
  1. AMETOP                             /00041401/ [Concomitant]
     Indication: PRODUCT USED FOR UNKNOWN INDICATION
     Dosage: 1.5 G, QW
     Route: 061
  2. NAGLAZYME [Suspect]
     Active Substance: GALSULFASE
     Indication: MUCOPOLYSACCHARIDOSIS VI
     Dosage: 15 MG, QOW
     Route: 042
     Dates: start: 20150523
  3. NAGLAZYME [Suspect]
     Active Substance: GALSULFASE
     Dosage: 20 MG, QOW
     Route: 042
     Dates: start: 20150523

REACTIONS (1)
  - Respiratory disorder [Recovered/Resolved]

NARRATIVE: CASE EVENT DATE: 20171113
